FAERS Safety Report 8211596-6 (Version None)
Quarter: 2012Q1

REPORT INFORMATION
  Report Type: 
  Country: None (occurrence: None)
  Receive Date: 20120229
  Receipt Date: 20110311
  Transmission Date: 20120608
  Serious: Yes (Life-Threatening, Hospitalization, Disabling)
  Sender: FDA-Public Use
  Company Number: US-JNJFOC-20090206413

PATIENT
  Age: 36 Month
  Sex: Female
  Weight: 15.3 kg

DRUGS (4)
  1. CHILDREN'S MOTRIN [Suspect]
     Indication: COUGH
  2. SULFUR (SULFUR) [Suspect]
     Indication: ILL-DEFINED DISORDER
  3. ERYTHROMYCIN [Suspect]
     Indication: ILL-DEFINED DISORDER
  4. ACETAMINOPHEN [Suspect]
     Indication: PRODUCT USED FOR UNKNOWN INDICATION

REACTIONS (2)
  - BLINDNESS [None]
  - TOXIC EPIDERMAL NECROLYSIS [None]
